FAERS Safety Report 4425182-7 (Version None)
Quarter: 2004Q3

REPORT INFORMATION
  Report Type: 
  Country: None (occurrence: None)
  Receive Date: 20040719
  Receipt Date: 20030429
  Transmission Date: 20050211
  Serious: Yes (Hospitalization)
  Sender: FDA-Public Use
  Company Number: 172549

PATIENT
  Age: 62 Year
  Sex: Female
  Weight: 90.7194 kg

DRUGS (11)
  1. AVONEX [Suspect]
     Indication: MULTIPLE SCLEROSIS
     Dosage: 30 MCG QW IM
     Route: 030
     Dates: start: 19980101
  2. NEURONTIN [Concomitant]
  3. CELEBREX [Concomitant]
  4. MECLIZINE [Concomitant]
  5. TIAZAC [Concomitant]
  6. BACLOFEN [Concomitant]
  7. PENTA-TRIAMTERENE HCTZ [Concomitant]
  8. PREVACID [Concomitant]
  9. ZOLOFT [Concomitant]
  10. AZATHIOPRINE [Concomitant]
  11. AMANTADINE HCL [Concomitant]

REACTIONS (4)
  - BLOOD GLUCOSE INCREASED [None]
  - CHEST PAIN [None]
  - MULTIPLE SCLEROSIS RELAPSE [None]
  - VOMITING [None]
